FAERS Safety Report 10655660 (Version 2)
Quarter: 2015Q1

REPORT INFORMATION
  Report Type: Spontaneous
  Country: US (occurrence: US)
  Receive Date: 20141216
  Receipt Date: 20150312
  Transmission Date: 20150720
  Serious: Yes (Other)
  Sender: FDA-Public Use
  Company Number: US-BAXTER-2014BAX073329

PATIENT
  Sex: Male

DRUGS (1)
  1. ADVATE [Suspect]
     Active Substance: ANTIHEMOPHILIC FACTOR, HUMAN RECOMBINANT
     Indication: CONGENITAL COAGULOPATHY
     Route: 065
     Dates: start: 201403

REACTIONS (2)
  - Drug ineffective [Recovering/Resolving]
  - Factor VIII inhibition [Recovering/Resolving]
